FAERS Safety Report 15805385 (Version 1)
Quarter: 2019Q1

REPORT INFORMATION
  Report Type: Spontaneous
  Country: US (occurrence: US)
  Receive Date: 20190110
  Receipt Date: 20190110
  Transmission Date: 20190417
  Serious: No
  Sender: FDA-Public Use
  Company Number: US-TEVA-2018-US-992213

PATIENT
  Sex: Male

DRUGS (2)
  1. COPAXONE [Suspect]
     Active Substance: GLATIRAMER ACETATE
     Indication: RELAPSING-REMITTING MULTIPLE SCLEROSIS
     Dates: start: 2003, end: 201812
  2. COPAXONE [Suspect]
     Active Substance: GLATIRAMER ACETATE
     Dates: start: 2003, end: 201812

REACTIONS (3)
  - Skin indentation [Not Recovered/Not Resolved]
  - Skin exfoliation [Recovered/Resolved]
  - Blood blister [Not Recovered/Not Resolved]

NARRATIVE: CASE EVENT DATE: 2013
